FAERS Safety Report 9001831 (Version 1)
Quarter: 2013Q1

REPORT INFORMATION
  Report Type: Report from Study
  Country: AU (occurrence: AU)
  Receive Date: 20130107
  Receipt Date: 20130107
  Transmission Date: 20140127
  Serious: Yes (Other)
  Sender: FDA-Public Use
  Company Number: AU-ROCHE-1177123

PATIENT
  Sex: Female

DRUGS (12)
  1. TOCILIZUMAB [Suspect]
     Indication: RHEUMATOID ARTHRITIS
     Route: 042
     Dates: start: 20120416
  2. FRUSEMIDE [Concomitant]
     Indication: JOINT SWELLING
     Route: 048
  3. ONBREZ [Concomitant]
     Route: 065
  4. AMIODARONE [Concomitant]
     Route: 065
  5. FOLIC ACID [Concomitant]
     Route: 065
  6. VITAMIN B12 [Concomitant]
     Route: 065
  7. OVESTIN [Concomitant]
  8. OXYBUTYNIN HYDROCHLORIDE [Concomitant]
     Route: 065
  9. PANADOL OSTEO [Concomitant]
     Route: 065
  10. PREDNISOLONE [Concomitant]
     Route: 065
  11. VENTOLIN [Concomitant]
  12. OXYGEN [Concomitant]
     Route: 065

REACTIONS (2)
  - Humerus fracture [Recovering/Resolving]
  - Lung infection [Recovering/Resolving]
